FAERS Safety Report 8651197 (Version 2)
Quarter: 2012Q4

REPORT INFORMATION
  Report Type: 
  Country: BR (occurrence: BR)
  Receive Date: 20120705
  Receipt Date: 20120924
  Transmission Date: 20130627
  Serious: Yes (Other)
  Sender: FDA-Public Use
  Company Number: BR-PFIZER INC-2012091545

PATIENT
  Age: 65 Year
  Sex: Female
  Weight: 46.5 kg

DRUGS (9)
  1. XALATAN [Suspect]
     Indication: GLAUCOMA
     Dosage: 3 ug (1 drop each eye), 1x/day
     Route: 047
     Dates: start: 20120407
  2. LATANOPROST [Suspect]
     Dosage: UNK
  3. ALENIA [Concomitant]
     Dosage: 2 DF, 2x/day
     Dates: start: 2008
  4. LOSARTAN POTASSIUM [Concomitant]
     Dosage: UNK, 2x/day
  5. SIMVASTATIN [Concomitant]
     Dosage: 20 mg, 1x/day at night
  6. OMEPRAZOLE [Concomitant]
     Dosage: 2 DF, UNK while fasting
  7. PERIDONA [Concomitant]
     Dosage: UNK, 3x/day before meals
  8. ALENDRONATE SODIUM [Concomitant]
     Dosage: 70 mg, weekly
  9. CALCIUM [Concomitant]
     Dosage: 500 mg, 1x/day

REACTIONS (8)
  - Vision blurred [Recovered/Resolved]
  - Visual acuity reduced [Unknown]
  - Chest pain [Recovered/Resolved]
  - Myalgia [Unknown]
  - Allergic cough [Recovered/Resolved]
  - Headache [Not Recovered/Not Resolved]
  - Eye pain [Unknown]
  - Pain in extremity [Recovered/Resolved]
